FAERS Safety Report 8050107-5 (Version None)
Quarter: 2012Q1

REPORT INFORMATION
  Report Type: 
  Country: None (occurrence: None)
  Receive Date: 20120117
  Receipt Date: 20120105
  Transmission Date: 20120608
  Serious: Yes (Hospitalization)
  Sender: FDA-Public Use
  Company Number: US-MERCK-1110USA03835

PATIENT
  Age: 72 Year
  Sex: Female

DRUGS (1)
  1. FOSAMAX [Suspect]
     Indication: OSTEOPOROSIS
     Route: 048
     Dates: start: 20051101, end: 20101201

REACTIONS (9)
  - GASTROINTESTINAL DISORDER [None]
  - ANXIETY [None]
  - HYPERTENSION [None]
  - FEMUR FRACTURE [None]
  - BLOOD CHOLESTEROL INCREASED [None]
  - FALL [None]
  - ARTHRITIS [None]
  - CALCIUM DEFICIENCY [None]
  - BACK PAIN [None]
